FAERS Safety Report 4602073-X (Version None)
Quarter: 2005Q1

REPORT INFORMATION
  Report Type: 
  Country: None (occurrence: None)
  Receive Date: 20050308
  Receipt Date: 20050228
  Transmission Date: 20050727
  Serious: Yes (Hospitalization, Disabling)
  Sender: FDA-Public Use
  Company Number: DK-MERCK-0503DNK00004

PATIENT

DRUGS (1)
  1. VIOXX [Suspect]
     Indication: BACK PAIN
     Route: 048
     Dates: start: 20011003, end: 20021104

REACTIONS (2)
  - MEMORY IMPAIRMENT [None]
  - VISUAL ACUITY REDUCED [None]
